FAERS Safety Report 25072305 (Version 1)
Quarter: 2025Q1

REPORT INFORMATION
  Report Type: Spontaneous
  Country: GB (occurrence: GB)
  Receive Date: 20250313
  Receipt Date: 20250313
  Transmission Date: 20250408
  Serious: Yes (Disabling)
  Sender: ABBVIE
  Company Number: None

PATIENT
  Age: 19 Year
  Sex: Male

DRUGS (2)
  1. CIPRALEX [Suspect]
     Active Substance: ESCITALOPRAM OXALATE
     Indication: Product used for unknown indication
     Route: 048
  2. TRAZODONE [Concomitant]
     Active Substance: TRAZODONE HYDROCHLORIDE
     Indication: Insomnia

REACTIONS (3)
  - Anhedonia [Not Recovered/Not Resolved]
  - Sexual dysfunction [Not Recovered/Not Resolved]
  - Depersonalisation/derealisation disorder [Recovering/Resolving]
